FAERS Safety Report 7478222-5 (Version None)
Quarter: 2011Q2

REPORT INFORMATION
  Report Type: 
  Country: None (occurrence: None)
  Receive Date: 20110513
  Receipt Date: 20110504
  Transmission Date: 20111010
  Serious: Yes (Hospitalization, Other)
  Sender: FDA-Public Use
  Company Number: PHHY2011DE21072

PATIENT
  Sex: Male
  Weight: 66 kg

DRUGS (6)
  1. VIDAZA [Suspect]
     Indication: MYELODYSPLASTIC SYNDROME
     Dosage: 75 MG, UNK
     Route: 058
     Dates: start: 20090101
  2. CIPROFLOXACIN [Concomitant]
     Indication: INFECTION PROPHYLAXIS
     Dosage: 250 MG, BID
     Route: 048
  3. EXJADE [Suspect]
     Dosage: 500MG/DAY
     Route: 048
  4. FLUCONAZOLE [Concomitant]
     Indication: INFECTION PROPHYLAXIS
     Dosage: 200 MG, QD
     Route: 048
  5. VIDAZA [Suspect]
     Dosage: 75 MG, UNK
     Dates: start: 20110201
  6. CLARITHROMYCIN [Concomitant]
     Indication: INFECTION PROPHYLAXIS
     Dosage: 250 MG, BID
     Route: 048

REACTIONS (5)
  - LEUKOCYTOCLASTIC VASCULITIS [None]
  - PRURITUS [None]
  - SKIN PLAQUE [None]
  - RENAL VASCULITIS [None]
  - RASH [None]
